FAERS Safety Report 8478926-1 (Version None)
Quarter: 2012Q2

REPORT INFORMATION
  Report Type: 
  Country: None (occurrence: None)
  Receive Date: 20120629
  Receipt Date: 20120621
  Transmission Date: 20120825
  Serious: Yes (Death, Hospitalization, Other)
  Sender: FDA-Public Use
  Company Number: DK-TEVA-307344ISR

PATIENT
  Sex: Female

DRUGS (7)
  1. LITHIUM CITRATE [Suspect]
     Indication: SCHIZOAFFECTIVE DISORDER
     Dosage: DOSE: 1+0+0+1.5, STYRKE: 6 MMOL LI+
     Route: 048
     Dates: end: 20111023
  2. FERRO DURETTER [Concomitant]
     Dates: end: 20111023
  3. ZIPRASIDONE HYDROCHLORIDE [Suspect]
     Indication: SCHIZOAFFECTIVE DISORDER
     Route: 048
     Dates: end: 20111023
  4. ESCITALOPRAM [Suspect]
     Indication: SCHIZOAFFECTIVE DISORDER
     Route: 048
     Dates: end: 20111023
  5. CENTYL MED KALIUMKLORID [Concomitant]
     Dates: end: 20111023
  6. ALPRAZOLAM [Concomitant]
     Dates: end: 20111022
  7. MIRTAZAPINE [Suspect]
     Indication: SCHIZOAFFECTIVE DISORDER
     Route: 048
     Dates: start: 20110101, end: 20111023

REACTIONS (14)
  - RHABDOMYOLYSIS [None]
  - OSTEOSYNTHESIS [None]
  - LACTIC ACIDOSIS [None]
  - HYPERTENSION [None]
  - LACUNAR INFARCTION [None]
  - ORGAN FAILURE [None]
  - HEPATIC CIRRHOSIS [None]
  - NEUROLEPTIC MALIGNANT SYNDROME [None]
  - FALL [None]
  - HUMERUS FRACTURE [None]
  - RENAL FAILURE [None]
  - PYREXIA [None]
  - DYSPNOEA [None]
  - CARDIAC HYPERTROPHY [None]
